FAERS Safety Report 5761365-1 (Version None)
Quarter: 2008Q2

REPORT INFORMATION
  Report Type: 
  Country: None (occurrence: None)
  Receive Date: 20080606
  Receipt Date: 20080605
  Transmission Date: 20081010
  Serious: Yes (Hospitalization, Other)
  Sender: FDA-Public Use
  Company Number: SE-BRISTOL-MYERS SQUIBB COMPANY-14200760

PATIENT
  Age: 44 Year
  Sex: Female

DRUGS (7)
  1. ABILIFY [Suspect]
     Indication: AGGRESSION
     Dates: start: 20080401, end: 20080401
  2. TRIPTIZOL [Interacting]
  3. ZOLPIDEM TARTRATE [Concomitant]
  4. HUMINSULIN BASAL [Concomitant]
  5. FOLACIN [Concomitant]
  6. ASPIRIN [Concomitant]
  7. TRIOBE [Concomitant]

REACTIONS (3)
  - CEREBRAL INFARCTION [None]
  - DRUG INTERACTION [None]
  - PYREXIA [None]
